FAERS Safety Report 17530383 (Version 2)
Quarter: 2020Q1

REPORT INFORMATION
  Report Type: Spontaneous
  Country: DE (occurrence: DE)
  Receive Date: 20200312
  Receipt Date: 20200316
  Transmission Date: 20200409
  Serious: Yes (Life-Threatening, Other)
  Sender: FDA-Public Use
  Company Number: DE-TERSERA THERAPEUTICS LLC-2020TRS000620

PATIENT

DRUGS (2)
  1. ZOLADEX [Suspect]
     Active Substance: GOSERELIN ACETATE
     Indication: ABDOMINAL PAIN
     Dosage: UNK
     Route: 058
     Dates: start: 20200117
  2. ZOLADEX [Suspect]
     Active Substance: GOSERELIN ACETATE
     Dosage: UNK
     Route: 058
     Dates: start: 20200220

REACTIONS (7)
  - Peripheral swelling [Unknown]
  - Epilepsy [Not Recovered/Not Resolved]
  - Antiphospholipid syndrome [Unknown]
  - Cerebrovascular accident [Not Recovered/Not Resolved]
  - Internal haemorrhage [Unknown]
  - Gastrointestinal motility disorder [Unknown]
  - Off label use [Unknown]
